FAERS Safety Report 19365079 (Version 1)
Quarter: 2021Q2

REPORT INFORMATION
  Report Type: Spontaneous
  Country: US (occurrence: US)
  Receive Date: 20210602
  Receipt Date: 20210602
  Transmission Date: 20210717
  Serious: Yes (Hospitalization)
  Sender: FDA-Public Use
  Company Number: None

PATIENT
  Sex: Male

DRUGS (18)
  1. AMBRISENTAN 5MG TAB [Suspect]
     Active Substance: AMBRISENTAN
     Indication: PULMONARY HYPERTENSION
     Route: 048
     Dates: start: 20190820
  2. CEPHALEXIN. [Concomitant]
     Active Substance: CEPHALEXIN
  3. CYANOCOBALAM [Concomitant]
     Active Substance: CYANOCOBALAMIN
  4. PRIMIDONE. [Concomitant]
     Active Substance: PRIMIDONE
  5. ELIQUIS [Concomitant]
     Active Substance: APIXABAN
  6. MIDODRINE [Concomitant]
     Active Substance: MIDODRINE
  7. TESTOST CYP [Concomitant]
     Active Substance: TESTOSTERONE CYPIONATE
  8. VITAMIN D [Concomitant]
     Active Substance: VITAMIN D NOS
  9. ALPRAZOLAM. [Concomitant]
     Active Substance: ALPRAZOLAM
  10. BUDES/FORMOT [Concomitant]
  11. BUMETANIDE. [Concomitant]
     Active Substance: BUMETANIDE
  12. PANTOPRAZOLE [Concomitant]
     Active Substance: PANTOPRAZOLE
  13. FENOFIBRATE. [Concomitant]
     Active Substance: FENOFIBRATE
  14. MUPIROCIN OIN [Concomitant]
  15. SILDENAFIL 20MG TAB [Suspect]
     Active Substance: SILDENAFIL
     Indication: PULMONARY HYPERTENSION
     Route: 048
     Dates: start: 20190426
  16. METOPROLOL ER [Concomitant]
     Active Substance: METOPROLOL SUCCINATE
  17. PROPRANOLOL [Concomitant]
     Active Substance: PROPRANOLOL HYDROCHLORIDE
  18. ESCITALOPRAM [Concomitant]
     Active Substance: ESCITALOPRAM OXALATE

REACTIONS (4)
  - Haemoglobin decreased [None]
  - COVID-19 [None]
  - Heart rate irregular [None]
  - Candida infection [None]
